FAERS Safety Report 21904900 (Version 2)
Quarter: 2023Q1

REPORT INFORMATION
  Report Type: Report from Study
  Country: PT (occurrence: PT)
  Receive Date: 20230124
  Receipt Date: 20230213
  Transmission Date: 20230418
  Serious: Yes (Other)
  Sender: FDA-Public Use
  Company Number: PT-ABBVIE-4279862

PATIENT
  Age: 78 Year
  Sex: Male

DRUGS (10)
  1. CARBIDOPA\LEVODOPA [Suspect]
     Active Substance: CARBIDOPA\LEVODOPA
     Indication: Parkinson^s disease
     Dosage: 20 MG + 5 MG?LAST ADMIN DATE WAS 2022?FREQUENCY TEXT: MORN:17CC;MAINT:6.1CC/H;EXTRA:3.5CC
     Route: 050
     Dates: start: 20220217, end: 2022
  2. CARBIDOPA\LEVODOPA [Suspect]
     Active Substance: CARBIDOPA\LEVODOPA
     Dosage: 20 MG + 5 MG?FREQUENCY TEXT: MORN:13CC;MAINT:4.9CC/H;EXTRA:1CC
     Route: 050
     Dates: start: 2022
  3. LEDIAMOX [Concomitant]
     Indication: Product used for unknown indication
     Dosage: 2 TABLET?FORM STRENGTH: 125 MILLIGRAM?FREQUENCY TEXT: AT BREAKFAST + AT DINNER?BEFORE DUODOPA
     Route: 048
  4. RIVOTRIL [Concomitant]
     Active Substance: CLONAZEPAM
     Indication: Product used for unknown indication
     Dosage: 2 TABLET?FORM STRENGTH: 1 MILLIGRAM?FREQUENCY TEXT: AT BREAKFAST + AT BEDTIME?BEFORE DUODOPA
     Route: 048
  5. ATROPINE [Concomitant]
     Active Substance: ATROPINE
     Indication: Product used for unknown indication
     Route: 065
  6. LOMOTIL [Concomitant]
     Active Substance: ATROPINE SULFATE\DIPHENOXYLATE HYDROCHLORIDE
     Indication: Product used for unknown indication
     Dosage: FORM STRENGTH: 10 MILLIGRAM/MILLILITERS?FREQUENCY TEXT: 2 DROPS TO LUNCH + 1 DROP AT DINNER?START...
     Route: 065
  7. CYANOCOBALAMIN\FOLIC ACID\PYRIDOXINE HYDROCHLORIDE [Concomitant]
     Active Substance: CYANOCOBALAMIN\FOLIC ACID\PYRIDOXINE HYDROCHLORIDE
     Indication: Product used for unknown indication
     Dosage: 1 TABLET?FORM STRENGTH: 5 MILLIGRAM?FREQUENCY TEXT: AT BREAKFAST?START DATE TEXT: BEFORE DUODOPA
     Route: 065
  8. ESCITALOPRAM KRKA [Concomitant]
     Indication: Product used for unknown indication
     Dosage: 1 TABLET?FORM STRENGTH: 10 MILLIGRAM?FREQUENCY TEXT: AT BREAKFAST?START DATE TEXT: BEFORE DUODOPA
     Route: 048
  9. FOLIC ACID [Concomitant]
     Active Substance: FOLIC ACID
     Indication: Product used for unknown indication
     Dosage: 1 TABLET
  10. BEDOZE [Concomitant]
     Indication: Product used for unknown indication
     Dosage: FORM STRENGTH: 1 MILLIGRAM?FREQUENCY TEXT: AT BREAKFAST?START DATE TEXT: BEFORE DUODOPA
     Route: 065

REACTIONS (3)
  - Wheezing [Recovered/Resolved]
  - Prolonged expiration [Recovered/Resolved]
  - Bronchitis [Recovered/Resolved]

NARRATIVE: CASE EVENT DATE: 20230116
